FAERS Safety Report 5036330-2 (Version None)
Quarter: 2006Q2

REPORT INFORMATION
  Report Type: 
  Country: None (occurrence: None)
  Receive Date: 20060601
  Receipt Date: 20060227
  Transmission Date: 20061013
  Serious: Yes (Other)
  Sender: FDA-Public Use
  Company Number: US200603000439

PATIENT
  Sex: Male

DRUGS (1)
  1. CYMBALTA [Suspect]
     Dosage: 600 MG, OTHER; 120 MG, DAILY (1/D), ORAL
     Route: 050
     Dates: start: 20060201

REACTIONS (5)
  - CONSTIPATION [None]
  - DRY MOUTH [None]
  - INSOMNIA [None]
  - INTENTIONAL OVERDOSE [None]
  - MEDICATION ERROR [None]
